FAERS Safety Report 4600224-4 (Version None)
Quarter: 2005Q1

REPORT INFORMATION
  Report Type: 
  Country: None (occurrence: None)
  Receive Date: 20050303
  Receipt Date: 20050303
  Transmission Date: 20050727
  Serious: Yes (Disabling)
  Sender: FDA-Public Use
  Company Number: None

PATIENT
  Age: 48 Year
  Sex: Female
  Weight: 74.8435 kg

DRUGS (1)
  1. GENTAMICIN [Suspect]
     Indication: PYELONEPHRITIS
     Dosage: DAILY    IV
     Route: 042
     Dates: start: 20050117, end: 20050130

REACTIONS (6)
  - COORDINATION ABNORMAL [None]
  - DIZZINESS [None]
  - FATIGUE [None]
  - FEELING ABNORMAL [None]
  - OSCILLOPSIA [None]
  - VESTIBULAR DISORDER [None]
